FAERS Safety Report 6142624-X (Version None)
Quarter: 2009Q2

REPORT INFORMATION
  Report Type: 
  Country: None (occurrence: None)
  Receive Date: 20090403
  Receipt Date: 20090327
  Transmission Date: 20091009
  Serious: Yes (Other)
  Sender: FDA-Public Use
  Company Number: US-BAYER-200916825NA

PATIENT
  Sex: Female

DRUGS (1)
  1. CIPROFLOXACIN HCL [Suspect]
     Indication: DRUG USE FOR UNKNOWN INDICATION
     Dosage: TOTAL DAILY DOSE: 500 MG  UNIT DOSE: 500 MG

REACTIONS (7)
  - ABDOMINAL DISCOMFORT [None]
  - DEAFNESS UNILATERAL [None]
  - DIARRHOEA [None]
  - INSOMNIA [None]
  - PARAESTHESIA [None]
  - SENSORY DISTURBANCE [None]
  - TINNITUS [None]
